FAERS Safety Report 4411409-4 (Version None)
Quarter: 2004Q3

REPORT INFORMATION
  Report Type: 
  Country: None (occurrence: None)
  Receive Date: 20040727
  Receipt Date: 20040713
  Transmission Date: 20050211
  Serious: Yes (Hospitalization)
  Sender: FDA-Public Use
  Company Number: 2004-BP-05708YA

PATIENT
  Age: 56 Year
  Sex: Male

DRUGS (1)
  1. FLOMAX [Suspect]
     Dosage: 0.4 MG PO
     Route: 048
     Dates: start: 20030501, end: 20031117

REACTIONS (1)
  - MYOCARDIAL INFARCTION [None]
